FAERS Safety Report 10565213 (Version 2)
Quarter: 2014Q4

REPORT INFORMATION
  Report Type: Spontaneous
  Country: DE (occurrence: None)
  Receive Date: 20141103
  Receipt Date: 20141124
  Transmission Date: 20150529
  Serious: Yes (Other)
  Sender: FDA-Public Use
  Company Number: 2014053441

PATIENT
  Sex: Male

DRUGS (4)
  1. ASS (ACETYLSALICYLIC ACID) [Concomitant]
  2. FRAGMIN [Suspect]
     Active Substance: DALTEPARIN SODIUM
     Indication: ANTIPHOSPHOLIPID SYNDROME
     Dosage: 5000 IU, 1X/DAY, TRANSPLACENTAL
     Route: 064
     Dates: start: 20131217, end: 20140821
  3. KEIMAX (CEFTIBUTEN) [Concomitant]
  4. FRAGMIN [Suspect]
     Active Substance: DALTEPARIN SODIUM
     Indication: FACTOR V LEIDEN MUTATION
     Dosage: 5000 IU, 1X/DAY, TRANSPLACENTAL
     Route: 064
     Dates: start: 20131217, end: 20140821

REACTIONS (2)
  - Maternal drugs affecting foetus [None]
  - Foetal distress syndrome [None]

NARRATIVE: CASE EVENT DATE: 20131217
